FAERS Safety Report 20453235 (Version 1)
Quarter: 2022Q1

REPORT INFORMATION
  Report Type: Spontaneous
  Country: CN (occurrence: CN)
  Receive Date: 20220210
  Receipt Date: 20220210
  Transmission Date: 20220423
  Serious: Yes (Hospitalization, Other)
  Sender: FDA-Public Use
  Company Number: CN-LUPIN PHARMACEUTICALS INC.-2022-01631

PATIENT
  Age: 44 Year
  Sex: Male

DRUGS (2)
  1. DICLOFENAC SODIUM [Suspect]
     Active Substance: DICLOFENAC SODIUM
     Indication: Arthralgia
     Dosage: 50 MG (SUSTAINED-RELEASE CAPSULE)
     Route: 048
  2. CIMETIDINE [Suspect]
     Active Substance: CIMETIDINE
     Indication: Arthralgia
     Dosage: 200 MG
     Route: 048

REACTIONS (5)
  - Haemolytic anaemia [Recovering/Resolving]
  - Hyperbilirubinaemia [Recovered/Resolved]
  - Liver injury [Recovered/Resolved]
  - Renal disorder [Recovered/Resolved]
  - Intentional product misuse [Recovered/Resolved]
